FAERS Safety Report 10187259 (Version 1)
Quarter: 2014Q2

REPORT INFORMATION
  Report Type: Spontaneous
  Country: US (occurrence: None)
  Receive Date: 20140520
  Receipt Date: 20140520
  Transmission Date: 20141212
  Serious: Yes (Other)
  Sender: FDA-Public Use
  Company Number: 201405062

PATIENT
  Sex: Male

DRUGS (1)
  1. TESTIM [Suspect]

REACTIONS (1)
  - Thrombosis [None]
